FAERS Safety Report 4380126-1 (Version None)
Quarter: 2004Q2

REPORT INFORMATION
  Report Type: 
  Country: None (occurrence: None)
  Receive Date: 20040614
  Receipt Date: 20040310
  Transmission Date: 20050107
  Serious: No
  Sender: FDA-Public Use
  Company Number: M04-341-070

PATIENT
  Age: 74 Year
  Sex: Female
  Weight: 47 kg

DRUGS (1)
  1. VELCADE [Suspect]
     Indication: MULTIPLE MYELOMA
     Dosage: TWICE WEEKLY FOR 2 WKS: INTRAVENOUS
     Route: 042
     Dates: start: 20031210

REACTIONS (1)
  - PLATELET COUNT DECREASED [None]
